FAERS Safety Report 10797576 (Version 2)
Quarter: 2015Q2

REPORT INFORMATION
  Report Type: Spontaneous
  Country: US (occurrence: US)
  Receive Date: 20150216
  Receipt Date: 20150602
  Transmission Date: 20150821
  Serious: Yes (Life-Threatening, Hospitalization)
  Sender: FDA-Public Use
  Company Number: US-BAYER-2015-022349

PATIENT
  Age: 28 Year
  Sex: Female
  Weight: 72.56 kg

DRUGS (6)
  1. CIPROFLOXACIN. [Concomitant]
     Active Substance: CIPROFLOXACIN
     Dosage: 500 MG, BID
     Route: 048
     Dates: start: 20130221
  2. PHENERGAN AND CHLORAL HYDRATE [Concomitant]
     Dosage: 25 MG, UNK
     Route: 048
     Dates: start: 20130221
  3. DIFLUCAN [Concomitant]
     Active Substance: FLUCONAZOLE
     Dosage: 150 MG, QD
     Route: 048
     Dates: start: 20130221
  4. PRENATAL W/FOLIC ACID /02279001/ [Concomitant]
     Dosage: UNK UNK, QD
     Route: 048
     Dates: start: 20130221
  5. MIRENA [Suspect]
     Active Substance: LEVONORGESTREL
     Indication: CONTRACEPTION
     Dosage: 20 MCG/24HR, CONT
     Route: 015
     Dates: start: 20120423, end: 20130306
  6. MOTRIN [Concomitant]
     Active Substance: IBUPROFEN
     Dosage: 600 MG, UNK
     Route: 048
     Dates: start: 20130221

REACTIONS (6)
  - Infection [None]
  - General physical health deterioration [None]
  - Uterine perforation [None]
  - Abdominal pain [None]
  - Injury [None]
  - Ovarian cyst [None]

NARRATIVE: CASE EVENT DATE: 20130306
